FAERS Safety Report 4658837-X (Version None)
Quarter: 2005Q2

REPORT INFORMATION
  Report Type: 
  Country: None (occurrence: None)
  Receive Date: 20050511
  Receipt Date: 20050501
  Transmission Date: 20051028
  Serious: Yes (Other)
  Sender: FDA-Public Use
  Company Number: NL-MERCK-0505NLD00004

PATIENT
  Age: 3 Day
  Sex: Female

DRUGS (1)
  1. INDOCIN [Suspect]
     Indication: PATENT DUCTUS ARTERIOSUS
     Route: 042

REACTIONS (2)
  - ILEAL PERFORATION [None]
  - INTESTINAL INFARCTION [None]
